FAERS Safety Report 5482968-8 (Version None)
Quarter: 2007Q4

REPORT INFORMATION
  Report Type: 
  Country: None (occurrence: None)
  Receive Date: 20071011
  Receipt Date: 20070924
  Transmission Date: 20080405
  Serious: Yes (Hospitalization)
  Sender: FDA-Public Use
  Company Number: US-BOEHRINGER INGELHEIM PHARMACEUTICALS, INC.-2006-BP-02488BP

PATIENT
  Sex: Male
  Weight: 81 kg

DRUGS (21)
  1. MIRAPEX [Suspect]
     Indication: PARKINSON'S DISEASE
     Route: 048
     Dates: start: 19970601, end: 20030101
  2. ELDEPRYL [Concomitant]
     Indication: PARKINSON'S DISEASE
     Route: 048
     Dates: start: 19920101
  3. SINEMET [Concomitant]
     Indication: PARKINSON'S DISEASE
     Route: 048
     Dates: start: 19970101
  4. PERMAX [Concomitant]
     Indication: PARKINSON'S DISEASE
     Route: 048
     Dates: start: 19970101, end: 19970101
  5. COMTAN [Concomitant]
     Indication: PARKINSON'S DISEASE
     Dates: start: 20000721
  6. ATIVAN [Concomitant]
     Dates: start: 19971222
  7. PROZAC [Concomitant]
     Indication: DEPRESSION
     Dates: start: 19980101
  8. PROZAC [Concomitant]
  9. PAXIL [Concomitant]
     Indication: DEPRESSION
     Dates: start: 19990101, end: 19990101
  10. VITAMIN E [Concomitant]
     Dates: start: 20000101
  11. SINEMET CR [Concomitant]
     Indication: PARKINSON'S DISEASE
     Dosage: 3 AT 8AM, 3 AT 11AM, 3 AT 2PM, 3 AT 5PM, AND 3 AT 8PM
     Dates: start: 20061229
  12. SINEMET CR [Concomitant]
     Dates: start: 20050425
  13. ST. JOHN'S WORT [Concomitant]
     Indication: DEPRESSION
     Dates: start: 19980101
  14. PARCOPA [Concomitant]
  15. ASPIRIN [Concomitant]
  16. AMOXICILLIN [Concomitant]
     Dates: start: 20031111
  17. AMOXICILLIN [Concomitant]
     Dates: start: 20070803
  18. GLYCOLAX [Concomitant]
     Dates: start: 20061016
  19. CEPHALEXIN [Concomitant]
     Dates: start: 20070501
  20. NITROQUICK [Concomitant]
     Route: 060
     Dates: start: 20070803
  21. CLINDAMYCIN HCL [Concomitant]
     Indication: DERMAL CYST
     Dates: start: 20070202

REACTIONS (31)
  - ABDOMINAL PAIN [None]
  - ABDOMINAL PAIN UPPER [None]
  - ADJUSTMENT DISORDER WITH DEPRESSED MOOD [None]
  - ANGINA PECTORIS [None]
  - BACK PAIN [None]
  - CERVICAL SPINAL STENOSIS [None]
  - CHEST PAIN [None]
  - CONSTIPATION [None]
  - DEPRESSION [None]
  - DISTURBANCE IN ATTENTION [None]
  - FATIGUE [None]
  - HYPERHIDROSIS [None]
  - HYPERLIPIDAEMIA [None]
  - HYPOAESTHESIA [None]
  - HYPOTENSION [None]
  - INTERVERTEBRAL DISC PROTRUSION [None]
  - LIPOMA [None]
  - MEMORY IMPAIRMENT [None]
  - MENINGIOMA BENIGN [None]
  - MIDDLE INSOMNIA [None]
  - MUSCULOSKELETAL PAIN [None]
  - NARCISSISTIC PERSONALITY DISORDER [None]
  - NAUSEA [None]
  - NECK PAIN [None]
  - OBSESSIVE-COMPULSIVE DISORDER [None]
  - PARAESTHESIA [None]
  - PATHOLOGICAL GAMBLING [None]
  - ROAD TRAFFIC ACCIDENT [None]
  - SOMNOLENCE [None]
  - SUICIDAL BEHAVIOUR [None]
  - SUICIDE ATTEMPT [None]
